FAERS Safety Report 5651691-9 (Version None)
Quarter: 2008Q1

REPORT INFORMATION
  Report Type: 
  Country: None (occurrence: None)
  Receive Date: 20080305
  Receipt Date: 20080226
  Transmission Date: 20080703
  Serious: Yes (Other)
  Sender: FDA-Public Use
  Company Number: BR-PFIZER INC-2008018372

PATIENT
  Sex: Male

DRUGS (6)
  1. LIPITOR [Suspect]
     Indication: DYSLIPIDAEMIA
     Route: 048
  2. INSULIN [Concomitant]
  3. METFORMIN HCL [Concomitant]
  4. AAS [Concomitant]
     Route: 048
  5. SELOKEN [Concomitant]
     Route: 048
  6. ATMOS [Concomitant]

REACTIONS (4)
  - BLOOD CHOLESTEROL [None]
  - BLOOD SODIUM INCREASED [None]
  - CAROTID ARTERY OCCLUSION [None]
  - GLYCOSYLATED HAEMOGLOBIN INCREASED [None]
